FAERS Safety Report 13257713 (Version 2)
Quarter: 2017Q2

REPORT INFORMATION
  Report Type: Report from Study
  Country: US (occurrence: US)
  Receive Date: 20170221
  Receipt Date: 20170413
  Transmission Date: 20170830
  Serious: Yes (Death, Hospitalization, Other)
  Sender: FDA-Public Use
  Company Number: US-009507513-1702USA008051

PATIENT
  Age: 94 Year
  Sex: Male

DRUGS (1)
  1. PEMBROLIZUMAB. [Suspect]
     Active Substance: PEMBROLIZUMAB
     Indication: NON-SMALL CELL LUNG CANCER
     Dosage: 200 MG, EVERY 3 WEEKS
     Route: 042
     Dates: start: 20170113, end: 20170207

REACTIONS (8)
  - Heart rate irregular [Unknown]
  - Decreased appetite [Recovered/Resolved]
  - Decreased appetite [Recovered/Resolved]
  - Thyroid disorder [Unknown]
  - Death [Fatal]
  - Heart rate increased [Unknown]
  - Cardiac disorder [Unknown]
  - Dehydration [Unknown]

NARRATIVE: CASE EVENT DATE: 201701
